FAERS Safety Report 12579613 (Version 1)
Quarter: 2016Q3

REPORT INFORMATION
  Report Type: Spontaneous
  Country: FR (occurrence: CA)
  Receive Date: 20160721
  Receipt Date: 20160721
  Transmission Date: 20161109
  Serious: Yes (Hospitalization)
  Sender: FDA-Public Use
  Company Number: CA-FRI-1000059688

PATIENT
  Age: 62 Year
  Sex: Female
  Weight: 46 kg

DRUGS (16)
  1. SAPHRIS [Suspect]
     Active Substance: ASENAPINE MALEATE
     Indication: BIPOLAR DISORDER
     Dosage: 10 MG
     Route: 060
     Dates: start: 20120304, end: 20120324
  2. CETIRIZINE [Concomitant]
     Active Substance: CETIRIZINE HYDROCHLORIDE
     Indication: PRURITUS
  3. OLANZAPINE. [Concomitant]
     Active Substance: OLANZAPINE
  4. DIVALPROEX SODIUM. [Suspect]
     Active Substance: DIVALPROEX SODIUM
     Indication: BIPOLAR DISORDER
     Dosage: 250 MG
     Route: 048
     Dates: start: 2010
  5. LAMOTRIGINE. [Concomitant]
     Active Substance: LAMOTRIGINE
  6. HYDROCORTISONE ACETATE. [Concomitant]
     Active Substance: HYDROCORTISONE ACETATE
     Route: 061
  7. CLONAZEPAM. [Concomitant]
     Active Substance: CLONAZEPAM
     Dosage: 1 MG
     Route: 048
  8. LORAZEPAM. [Concomitant]
     Active Substance: LORAZEPAM
  9. PRISTIQ EXTENDED-RELEASE [Suspect]
     Active Substance: DESVENLAFAXINE SUCCINATE
     Indication: BIPOLAR DISORDER
     Dosage: 150 MG
     Route: 048
     Dates: end: 20120328
  10. CETIRIZINE [Concomitant]
     Active Substance: CETIRIZINE HYDROCHLORIDE
     Indication: RASH
     Dosage: 5 MG
     Route: 048
  11. PRISTIQ EXTENDED-RELEASE [Suspect]
     Active Substance: DESVENLAFAXINE SUCCINATE
     Dosage: 150 MG
     Route: 048
     Dates: end: 20120328
  12. PRISTIQ EXTENDED-RELEASE [Suspect]
     Active Substance: DESVENLAFAXINE SUCCINATE
     Dosage: 150 MG
     Route: 048
     Dates: end: 20120328
  13. TRAZODONE [Concomitant]
     Active Substance: TRAZODONE HYDROCHLORIDE
     Dosage: 50 MG
     Route: 048
  14. DIVALPROEX SODIUM. [Suspect]
     Active Substance: DIVALPROEX SODIUM
     Dosage: 250 MG
     Route: 048
     Dates: start: 2010
  15. LAMOTRIGINE. [Suspect]
     Active Substance: LAMOTRIGINE
     Indication: BIPOLAR DISORDER
     Dosage: 200 MG
     Route: 048
     Dates: start: 2010, end: 20120328
  16. PREMARIN [Concomitant]
     Active Substance: ESTROGENS, CONJUGATED
     Route: 061

REACTIONS (6)
  - Pruritus [Recovered/Resolved]
  - Contusion [Recovered/Resolved]
  - Oropharyngeal pain [Recovered/Resolved]
  - Swelling [Recovered/Resolved]
  - Rash [Recovered/Resolved]
  - Glossodynia [Recovered/Resolved]

NARRATIVE: CASE EVENT DATE: 20120304
